FAERS Safety Report 10913897 (Version 1)
Quarter: 2015Q1

REPORT INFORMATION
  Report Type: Spontaneous
  Country: US (occurrence: US)
  Receive Date: 20150313
  Receipt Date: 20150313
  Transmission Date: 20150721
  Serious: Yes (Other)
  Sender: FDA-Public Use
  Company Number: US-ELI_LILLY_AND_COMPANY-US201503000487

PATIENT
  Sex: Female

DRUGS (1)
  1. CYMBALTA [Suspect]
     Active Substance: DULOXETINE HYDROCHLORIDE
     Indication: DEPRESSION
     Dosage: 1 DF, UNKNOWN
     Dates: start: 201301, end: 201303

REACTIONS (16)
  - Anxiety [Unknown]
  - Agitation [Unknown]
  - Insomnia [Unknown]
  - Decreased appetite [Unknown]
  - Vomiting [Unknown]
  - Drug withdrawal syndrome [Unknown]
  - Mood swings [Unknown]
  - Irritability [Unknown]
  - Paraesthesia [Unknown]
  - Emotional disorder [Unknown]
  - Nausea [Unknown]
  - Sleep disorder [Unknown]
  - Nightmare [Unknown]
  - Hyperhidrosis [Unknown]
  - Weight decreased [Unknown]
  - Migraine [Unknown]
